FAERS Safety Report 4535188-5 (Version None)
Quarter: 2004Q4

REPORT INFORMATION
  Report Type: 
  Country: None (occurrence: None)
  Receive Date: 20041214
  Receipt Date: 20041007
  Transmission Date: 20050328
  Serious: No
  Sender: FDA-Public Use
  Company Number: 2004238405US

PATIENT
  Age: 91 Year
  Sex: Male
  Weight: 72.6 kg

DRUGS (10)
  1. BEXTRA [Suspect]
     Indication: ARTHRITIS
     Dosage: 10 MG, QD, ORAL
     Route: 048
     Dates: start: 20040611, end: 20040612
  2. NORVASC [Concomitant]
  3. TERAZOSIN HCL [Concomitant]
  4. PLAVIX [Concomitant]
  5. VITAMIN E [Concomitant]
  6. VITAMIN C [Concomitant]
  7. FISH OIL (FISH OIL) [Concomitant]
  8. MULTIVITAMINS (ERGOCALCIFEROL, RETINOL, PANTHENOL) [Concomitant]
  9. ZINC [Concomitant]
  10. CALCIUM LACTATE [Concomitant]

REACTIONS (3)
  - DYSPHAGIA [None]
  - PHARYNGOLARYNGEAL PAIN [None]
  - SWELLING FACE [None]
